FAERS Safety Report 25094977 (Version 1)
Quarter: 2025Q1

REPORT INFORMATION
  Report Type: Spontaneous
  Country: FR (occurrence: FR)
  Receive Date: 20250319
  Receipt Date: 20250319
  Transmission Date: 20250409
  Serious: Yes (Death, Other)
  Sender: ORGANON
  Company Number: FR-ORGANON-O2503CAN001375

PATIENT
  Sex: Male

DRUGS (1)
  1. PROPECIA [Suspect]
     Active Substance: FINASTERIDE
     Route: 048

REACTIONS (4)
  - Completed suicide [Fatal]
  - Post 5-alpha-reductase inhibitor syndrome [Unknown]
  - Insomnia [Unknown]
  - Depression [Unknown]
